FAERS Safety Report 9424620 (Version 1)
Quarter: 2013Q3

REPORT INFORMATION
  Report Type: Spontaneous
  Country: FR (occurrence: FR)
  Receive Date: 20130729
  Receipt Date: 20130729
  Transmission Date: 20140515
  Serious: Yes (Hospitalization)
  Sender: FDA-Public Use
  Company Number: FR-JNJFOC-20130711010

PATIENT
  Age: 87 Year
  Sex: Female

DRUGS (10)
  1. DUROGESIC [Suspect]
     Indication: PAIN
     Route: 062
     Dates: end: 20130410
  2. ACTISKENAN [Suspect]
     Indication: PAIN
     Route: 065
     Dates: end: 20130410
  3. EFFEXOR [Concomitant]
     Route: 065
  4. EXFORGE [Concomitant]
     Dosage: 10 MG/ 160 MG
     Route: 065
  5. CACIT D3 [Concomitant]
     Route: 065
  6. DIAMICRON [Concomitant]
     Route: 065
  7. TAHOR [Concomitant]
     Route: 065
  8. LIORESAL [Concomitant]
     Route: 065
  9. PARACETAMOL [Concomitant]
     Route: 065
  10. UVEDOSE [Concomitant]
     Route: 065

REACTIONS (9)
  - Bladder outlet obstruction [Recovering/Resolving]
  - Confusional state [Recovered/Resolved]
  - Miosis [Recovered/Resolved]
  - Urinary retention [Not Recovered/Not Resolved]
  - Agitation [Recovered/Resolved]
  - Restlessness [Recovered/Resolved]
  - Vomiting [Unknown]
  - Fatigue [Recovered/Resolved]
  - Aphasia [Recovered/Resolved]
